FAERS Safety Report 7994321-3 (Version None)
Quarter: 2011Q4

REPORT INFORMATION
  Report Type: 
  Country: None (occurrence: None)
  Receive Date: 20111220
  Receipt Date: 20111216
  Transmission Date: 20120403
  Serious: Yes (Death)
  Sender: FDA-Public Use
  Company Number: GB-GENZYME-CLOF-1001944

PATIENT
  Sex: Female

DRUGS (6)
  1. EVOLTRA [Suspect]
     Indication: ACUTE LYMPHOCYTIC LEUKAEMIA RECURRENT
     Dosage: CYCLE 1
     Route: 065
  2. EVOLTRA [Suspect]
     Dosage: CYCLE 2
     Route: 065
  3. ETOPOSIDE [Suspect]
     Indication: ACUTE LYMPHOCYTIC LEUKAEMIA RECURRENT
     Dosage: CYCLE 1
     Route: 065
  4. ETOPOSIDE [Suspect]
     Dosage: CYCLE 2
     Route: 065
  5. CYCLOPHOSPHAMIDE [Suspect]
     Indication: ACUTE LYMPHOCYTIC LEUKAEMIA RECURRENT
     Dosage: CYCLE 1
     Route: 065
  6. CYCLOPHOSPHAMIDE [Suspect]
     Dosage: CYCLE 2
     Route: 065

REACTIONS (2)
  - NEUTROPENIA [None]
  - MUCOSAL INFLAMMATION [None]
